FAERS Safety Report 5913107-4 (Version None)
Quarter: 2008Q4

REPORT INFORMATION
  Report Type: 
  Country: None (occurrence: None)
  Receive Date: 20081008
  Receipt Date: 20081008
  Transmission Date: 20090506
  Serious: Yes (Other)
  Sender: FDA-Public Use
  Company Number: None

PATIENT
  Age: 52 Year
  Sex: Female
  Weight: 47.6277 kg

DRUGS (1)
  1. ACTONEL [Suspect]
     Indication: OSTEOPOROSIS
     Dosage: 150 MG. ONCE/MONTH PILL - ORAL
     Route: 048
     Dates: start: 20080907

REACTIONS (26)
  - ABDOMINAL PAIN [None]
  - ABDOMINAL PAIN UPPER [None]
  - ANOREXIA [None]
  - ARTHRALGIA [None]
  - BACK PAIN [None]
  - BONE PAIN [None]
  - COUGH [None]
  - DIARRHOEA [None]
  - DIZZINESS [None]
  - DYSPEPSIA [None]
  - DYSPHAGIA [None]
  - DYSSTASIA [None]
  - FEELING ABNORMAL [None]
  - HEADACHE [None]
  - IMPAIRED DRIVING ABILITY [None]
  - IMPAIRED WORK ABILITY [None]
  - INFLUENZA [None]
  - INSOMNIA [None]
  - MALAISE [None]
  - MOVEMENT DISORDER [None]
  - MYALGIA [None]
  - NAUSEA [None]
  - PAIN IN JAW [None]
  - PYREXIA [None]
  - SINUSITIS [None]
  - VOMITING [None]
